FAERS Safety Report 18618848 (Version 2)
Quarter: 2021Q3

REPORT INFORMATION
  Report Type: Report from Study
  Country: US (occurrence: US)
  Receive Date: 20201215
  Receipt Date: 20210816
  Transmission Date: 20211014
  Serious: No
  Sender: FDA-Public Use
  Company Number: US-INCYTE CORPORATION-2020IN010938

PATIENT

DRUGS (7)
  1. JAKAFI [Suspect]
     Active Substance: RUXOLITINIB
     Indication: MYELOFIBROSIS
     Dosage: 10 MILLIGRAM, BID
     Route: 048
     Dates: start: 202011
  2. TRAMADOL. [Concomitant]
     Active Substance: TRAMADOL
     Indication: ARTHROPATHY
     Dosage: ABOUT 100 MG A DAY
     Route: 065
  3. LEVOFLOXACIN. [Concomitant]
     Active Substance: LEVOFLOXACIN
     Indication: PRODUCT USED FOR UNKNOWN INDICATION
     Route: 065
  4. JAKAFI [Suspect]
     Active Substance: RUXOLITINIB
     Dosage: 5 MILLIGRAM, BID
     Route: 048
  5. JAKAFI [Suspect]
     Active Substance: RUXOLITINIB
     Dosage: 5 MILLIGRAM, BID
     Route: 048
  6. JAKAFI [Suspect]
     Active Substance: RUXOLITINIB
     Dosage: UNK
     Route: 048
     Dates: end: 20210629
  7. DACOGEN [Concomitant]
     Active Substance: DECITABINE
     Indication: PRODUCT USED FOR UNKNOWN INDICATION
     Dosage: 2 TIMES A WEEK (EVERY MONDAY AND TUESDAY)
     Route: 065

REACTIONS (6)
  - Neutrophil count decreased [Not Recovered/Not Resolved]
  - Therapeutic response unexpected [Unknown]
  - White blood cell count decreased [Not Recovered/Not Resolved]
  - Blood iron increased [Unknown]
  - Cough [Recovering/Resolving]
  - Haemoglobin decreased [Recovering/Resolving]
